FAERS Safety Report 23346352 (Version 1)
Quarter: 2023Q4

REPORT INFORMATION
  Report Type: Spontaneous
  Country: AU (occurrence: AU)
  Receive Date: 20231228
  Receipt Date: 20231228
  Transmission Date: 20240109
  Serious: Yes (Other)
  Sender: FDA-Public Use
  Company Number: AU-AMGEN-AUSSP2023229929

PATIENT
  Age: 56 Year
  Sex: Male

DRUGS (1)
  1. CINACALCET HYDROCHLORIDE [Suspect]
     Active Substance: CINACALCET HYDROCHLORIDE
     Indication: Product used for unknown indication
     Dosage: UNK
     Route: 065

REACTIONS (5)
  - Calciphylaxis [Unknown]
  - Therapeutic response decreased [Unknown]
  - Hyperparathyroidism [Unknown]
  - Blood alkaline phosphatase increased [Unknown]
  - Hypercalcaemia [Unknown]
